FAERS Safety Report 4436245-4 (Version None)
Quarter: 2004Q3

REPORT INFORMATION
  Report Type: 
  Country: None (occurrence: None)
  Receive Date: 20040830
  Receipt Date: 20040610
  Transmission Date: 20050211
  Serious: No
  Sender: FDA-Public Use
  Company Number: US-BRISTOL-MYERS SQUIBB COMPANY-12610838

PATIENT
  Age: 39 Year
  Sex: Female
  Weight: 77 kg

DRUGS (8)
  1. ERBITUX [Suspect]
     Indication: CARCINOMA
  2. COUMADIN [Concomitant]
     Dosage: ALT 5 MG WITH 7.5 MG EVERY OTHER DAY.
  3. LORAZEPAM [Concomitant]
     Dosage: Q 6 HOURS.
  4. ZOFRAN [Concomitant]
     Dosage: 3XDAILY (NOT TAKEN)
  5. MULTI-VITAMIN [Concomitant]
  6. PROTONIX [Concomitant]
  7. CELEBREX [Concomitant]
  8. XELODA [Concomitant]
     Dosage: LAST DOSE 09-JUN-2004.

REACTIONS (1)
  - RASH [None]
